FAERS Safety Report 25575398 (Version 1)
Quarter: 2025Q3

REPORT INFORMATION
  Report Type: Spontaneous
  Country: EU (occurrence: EU)
  Receive Date: 20250718
  Receipt Date: 20250718
  Transmission Date: 20251021
  Serious: Yes (Hospitalization)
  Sender: TEVA
  Company Number: None

PATIENT
  Age: 50 Year
  Sex: Female
  Weight: 72 kg

DRUGS (3)
  1. FLUOROURACIL [Suspect]
     Active Substance: FLUOROURACIL
     Indication: Appendix cancer
     Route: 042
     Dates: start: 20250611
  2. FLUOROURACIL [Suspect]
     Active Substance: FLUOROURACIL
     Indication: Appendix cancer
     Route: 042
     Dates: start: 20250611, end: 20250611
  3. IRINOTECAN [Suspect]
     Active Substance: IRINOTECAN
     Indication: Appendix cancer
     Route: 042
     Dates: start: 20250611, end: 20250611

REACTIONS (1)
  - Neutropenia [Recovered/Resolved with Sequelae]

NARRATIVE: CASE EVENT DATE: 20250619
